FAERS Safety Report 12784544 (Version 2)
Quarter: 2016Q4

REPORT INFORMATION
  Report Type: Report from Study
  Country: None (occurrence: PR)
  Receive Date: 20160927
  Receipt Date: 20161205
  Transmission Date: 20170207
  Serious: Yes (Other)
  Sender: FDA-Public Use
  Company Number: PR-ABBVIE-16P-131-1736397-00

PATIENT
  Age: 36 Year
  Sex: Female
  Weight: 68.1 kg

DRUGS (2)
  1. LUPRON DEPOT [Suspect]
     Active Substance: LEUPROLIDE ACETATE
     Route: 050
     Dates: start: 20160923
  2. LUPRON DEPOT [Suspect]
     Active Substance: LEUPROLIDE ACETATE
     Indication: ENDOMETRIOSIS
     Route: 050
     Dates: start: 201311, end: 201404

REACTIONS (11)
  - Calculus bladder [Not Recovered/Not Resolved]
  - Ovarian disorder [Recovering/Resolving]
  - Haematoma [Recovered/Resolved]
  - Fibroma [Recovered/Resolved]
  - Uterine leiomyoma [Recovered/Resolved]
  - Ovarian cyst [Unknown]
  - Viral infection [Unknown]
  - Menorrhagia [Recovered/Resolved]
  - Vomiting [Recovered/Resolved]
  - Pain [Recovered/Resolved]
  - Menorrhagia [Recovered/Resolved]

NARRATIVE: CASE EVENT DATE: 201606
